FAERS Safety Report 4794788-8 (Version None)
Quarter: 2005Q3

REPORT INFORMATION
  Report Type: 
  Country: None (occurrence: None)
  Receive Date: 20050914
  Receipt Date: 20041005
  Transmission Date: 20060218
  Serious: Yes (Hospitalization)
  Sender: FDA-Public Use
  Company Number: 163-20785-04100064

PATIENT
  Age: 52 Year
  Sex: Female
  Weight: 103.6 kg

DRUGS (16)
  1. THALOMID [Suspect]
     Indication: MULTIPLE MYELOMA
     Dosage: 200 TO 400MG, DAILY, ORAL
     Route: 048
     Dates: start: 20040926, end: 20040930
  2. GENASENSE [Suspect]
     Indication: MULTIPLE MYELOMA
     Dosage: 5MG/KG, CONTINUOUS
     Dates: start: 20040922, end: 20040929
  3. ACTOS [Concomitant]
  4. BACTRIM DS [Concomitant]
  5. COUMADIN [Concomitant]
  6. DIFLUCAN [Concomitant]
  7. DIOVAN-ACT (CO-DIOVAN) [Concomitant]
  8. LEVAQUIN [Concomitant]
  9. PRAVACHOL [Concomitant]
  10. VITAMIN C (ASCORBIC ACID) [Concomitant]
  11. EZETIMIBE (EZETIMIBE) [Concomitant]
  12. FOLIC ACID [Concomitant]
  13. MAGNESIUM (MAGNESIUM) [Concomitant]
  14. DEXAMETHASONE [Suspect]
     Indication: MULTIPLE MYELOMA
     Dosage: 40 MG, DAILY, ORAL
     Route: 048
     Dates: start: 20040926, end: 20040928
  15. FAMVIR [Suspect]
  16. PROTONIX [Suspect]

REACTIONS (3)
  - BLOOD CREATININE INCREASED [None]
  - NAUSEA [None]
  - VOMITING [None]
